FAERS Safety Report 23128338 (Version 1)
Quarter: 2023Q4

REPORT INFORMATION
  Report Type: Spontaneous
  Country: AT (occurrence: AT)
  Receive Date: 20231031
  Receipt Date: 20231031
  Transmission Date: 20240109
  Serious: Yes (Hospitalization)
  Sender: FDA-Public Use
  Company Number: AT-CELLTRION HEALTHCARE HUNGARY KFT-2018AT025436

PATIENT
  Age: 78 Year
  Sex: Female
  Weight: 48 kg

DRUGS (59)
  1. FULVESTRANT [Suspect]
     Active Substance: FULVESTRANT
     Indication: Breast cancer metastatic
     Dosage: 500 MG, Q4W
     Route: 030
     Dates: start: 20190919, end: 20191112
  2. LETROZOLE [Suspect]
     Active Substance: LETROZOLE
     Indication: Breast cancer metastatic
     Dosage: 2.5 MG
     Route: 048
     Dates: start: 20181029, end: 20190613
  3. PACLITAXEL [Suspect]
     Active Substance: PACLITAXEL
     Indication: Breast cancer metastatic
     Dosage: 113.69 MG, EVERY WEEK
     Route: 042
     Dates: start: 20180810, end: 20180914
  4. PACLITAXEL [Suspect]
     Active Substance: PACLITAXEL
     Dosage: 142.11 MG, QW (142.11 MG, 1/WEEK (MOST RECENT DOSE PRIOR TO THE)
     Route: 042
     Dates: start: 20180928, end: 20181005
  5. PALBOCICLIB [Suspect]
     Active Substance: PALBOCICLIB
     Indication: Breast cancer metastatic
     Dosage: 125 MG
     Route: 048
     Dates: start: 20190919, end: 20191018
  6. PERTUZUMAB [Suspect]
     Active Substance: PERTUZUMAB
     Indication: Breast cancer metastatic
     Dosage: 840 MG, Q3W
     Route: 042
     Dates: start: 20180810
  7. TAMOXIFEN [Suspect]
     Active Substance: TAMOXIFEN
     Indication: Breast cancer metastatic
     Dosage: 20 MG, OTHER
     Route: 048
     Dates: start: 20190819, end: 20190827
  8. TRASTUZUMAB [Suspect]
     Active Substance: TRASTUZUMAB
     Indication: Breast cancer metastatic
     Dosage: 384 MG, EVERY 3 WEEKS
     Route: 042
     Dates: start: 20180810
  9. ADO-TRASTUZUMAB EMTANSINE [Suspect]
     Active Substance: ADO-TRASTUZUMAB EMTANSINE
     Indication: Breast cancer metastatic
     Dosage: 154 MG, Q3W
     Route: 042
     Dates: start: 20190704, end: 20190704
  10. ANTIFLAT [Concomitant]
     Indication: Product used for unknown indication
     Dosage: UNK
     Route: 065
     Dates: start: 20181126
  11. ANTIFLAT [Concomitant]
     Dosage: UNK
     Route: 065
  12. AVELOX [Concomitant]
     Active Substance: MOXIFLOXACIN HYDROCHLORIDE
     Indication: Osteonecrosis of jaw
     Dosage: UNK
     Route: 065
     Dates: start: 20190919, end: 20191101
  13. AVELOX [Concomitant]
     Active Substance: MOXIFLOXACIN HYDROCHLORIDE
     Indication: Osteonecrosis of jaw
     Dosage: UNK
     Route: 065
     Dates: start: 20190919, end: 20191101
  14. BUTYLSCOPOLAMINE BROMIDE [Concomitant]
     Active Substance: BUTYLSCOPOLAMINE BROMIDE
     Indication: Product used for unknown indication
     Dosage: UNK
     Route: 065
     Dates: start: 20191104, end: 20191111
  15. BUTYLSCOPOLAMINE BROMIDE [Concomitant]
     Active Substance: BUTYLSCOPOLAMINE BROMIDE
     Dosage: ONGOING = NOT CHECKED
     Route: 065
     Dates: start: 20191104, end: 20191111
  16. VITAMINS WITH MINERALS [Concomitant]
     Active Substance: MINERALS\VITAMINS
     Indication: Product used for unknown indication
     Dosage: UNK
     Route: 065
     Dates: start: 20180817, end: 20190615
  17. CALCIUM PHOSPHATE [Concomitant]
     Active Substance: CALCIUM PHOSPHATE
     Indication: Mucosal inflammation
     Dosage: UNK
     Route: 065
     Dates: start: 20180921
  18. CALCIUM CHLORIDE\SODIUM CHLORIDE\SODIUM PHOSPHATE, DIBASIC, ANHYDROUS\ [Concomitant]
     Active Substance: CALCIUM CHLORIDE\SODIUM CHLORIDE\SODIUM PHOSPHATE, DIBASIC, ANHYDROUS\SODIUM PHOSPHATE, MONOBASIC, A
     Indication: Mucosal inflammation
     Dosage: UNK
     Route: 065
     Dates: start: 20180921
  19. CIPROFLOXACIN [Concomitant]
     Active Substance: CIPROFLOXACIN
     Indication: Gastroenteritis radiation
     Dosage: UNK
     Route: 065
     Dates: start: 20181118
  20. DEXABENE [Concomitant]
     Indication: Product used for unknown indication
     Dosage: UNK
     Route: 065
     Dates: start: 20180810, end: 20180914
  21. DEXABENE [Concomitant]
     Indication: Product used for unknown indication
  22. DEXAMETHASONE SODIUM PHOSPHATE [Concomitant]
     Active Substance: DEXAMETHASONE SODIUM PHOSPHATE
     Indication: Product used for unknown indication
     Dosage: UNK
     Route: 065
     Dates: start: 20180810, end: 20180914
  23. FENTANYL [Concomitant]
     Active Substance: FENTANYL\FENTANYL CITRATE
     Indication: Osteonecrosis of jaw
     Dosage: UNK
     Route: 065
     Dates: start: 20191105
  24. FENTANYL [Concomitant]
     Active Substance: FENTANYL\FENTANYL CITRATE
     Indication: Osteonecrosis of jaw
     Dosage: UNK
     Route: 065
  25. DEXAMETHASONE [Concomitant]
     Active Substance: DEXAMETHASONE
     Indication: Product used for unknown indication
     Dosage: UNK
     Route: 065
     Dates: start: 20191115
  26. FULVESTRANT [Concomitant]
     Active Substance: FULVESTRANT
     Indication: Product used for unknown indication
     Dosage: UNK
     Route: 065
  27. GRANISETRON [Concomitant]
     Active Substance: GRANISETRON
     Indication: Product used for unknown indication
     Dosage: UNK
     Route: 065
     Dates: start: 20180810, end: 20180914
  28. Guttalax [Concomitant]
     Indication: Product used for unknown indication
     Dosage: ONGOING- CHECKED
     Route: 065
     Dates: start: 20191115
  29. ALBUMIN HUMAN [Concomitant]
     Active Substance: ALBUMIN HUMAN
     Dosage: UNK
     Route: 065
     Dates: start: 20191108, end: 20191110
  30. ALBUMIN HUMAN [Concomitant]
     Active Substance: ALBUMIN HUMAN
     Indication: Ascites
     Dosage: UNK
     Route: 065
     Dates: start: 20191108, end: 20191110
  31. KONAKION [Concomitant]
     Active Substance: PHYTONADIONE
     Indication: Product used for unknown indication
     Dosage: UNK
     Route: 065
     Dates: start: 20191115
  32. KYTRIL [Concomitant]
     Active Substance: GRANISETRON HYDROCHLORIDE
     Indication: Product used for unknown indication
     Dosage: UNK
     Route: 065
     Dates: start: 20180810, end: 20180914
  33. LANSOBENE [Concomitant]
     Indication: Product used for unknown indication
     Dosage: UNK
     Route: 065
     Dates: start: 20191104
  34. LANSOBENE [Concomitant]
     Dosage: ONGOING = CHECKED
     Route: 065
     Dates: start: 20191104
  35. FUROSEMIDE\SPIRONOLACTONE [Concomitant]
     Active Substance: FUROSEMIDE\SPIRONOLACTONE
     Indication: Oedema peripheral
     Dosage: UNK
     Route: 065
     Dates: start: 20191109
  36. FUROSEMIDE\SPIRONOLACTONE [Concomitant]
     Active Substance: FUROSEMIDE\SPIRONOLACTONE
     Dosage: UNK
     Route: 065
  37. LASIX [Concomitant]
     Active Substance: FUROSEMIDE
     Indication: Oedema peripheral
     Dosage: UNK
     Route: 065
     Dates: start: 20191106, end: 20191115
  38. LOVENOX [Concomitant]
     Active Substance: ENOXAPARIN SODIUM
     Indication: Product used for unknown indication
     Dosage: UNK
     Route: 065
     Dates: start: 20191104, end: 20191113
  39. POLYETHYLENE GLYCOLS [Concomitant]
     Active Substance: POLYETHYLENE GLYCOLS
     Indication: Constipation
     Dosage: 3350
     Route: 065
     Dates: start: 20180831, end: 20180915
  40. POLYETHYLENE GLYCOL 3350\POTASSIUM CHLORIDE\SODIUM BICARBONATE\SODIUM [Concomitant]
     Active Substance: POLYETHYLENE GLYCOL 3350\POTASSIUM CHLORIDE\SODIUM BICARBONATE\SODIUM CHLORIDE
     Indication: Constipation
     Dosage: UNK
     Route: 065
     Dates: start: 20180831, end: 20180915
  41. POLYETHYLENE GLYCOL 3350\POTASSIUM CHLORIDE\SODIUM BICARBONATE\SODIUM [Concomitant]
     Active Substance: POLYETHYLENE GLYCOL 3350\POTASSIUM CHLORIDE\SODIUM BICARBONATE\SODIUM CHLORIDE
     Dosage: UNK
     Route: 065
     Dates: start: 20191115
  42. MYCOSTATIN [Concomitant]
     Active Substance: NYSTATIN
     Indication: Mucosal inflammation
     Dosage: UNK
     Route: 065
     Dates: start: 20190819
  43. MYCOSTATIN [Concomitant]
     Active Substance: NYSTATIN
     Dosage: UNK
     Route: 065
     Dates: start: 20191104, end: 20191110
  44. MYCOSTATIN [Concomitant]
     Active Substance: NYSTATIN
     Dosage: UNK
     Route: 065
     Dates: start: 20191104, end: 20191110
  45. Novalgin [Concomitant]
     Dosage: 20 MG (DOSE FORM: 245)
     Route: 048
     Dates: start: 20181126, end: 20191103
  46. Novalgin [Concomitant]
     Indication: Osteonecrosis of jaw
     Dosage: UNK
     Route: 048
     Dates: start: 20180810, end: 20180914
  47. ONDANSETRON HYDROCHLORIDE [Concomitant]
     Active Substance: ONDANSETRON HYDROCHLORIDE
     Indication: Product used for unknown indication
     Dosage: UNK
     Route: 065
     Dates: start: 20180817, end: 20180907
  48. PANTOPRAZOLE SODIUM [Concomitant]
     Active Substance: PANTOPRAZOLE SODIUM
     Indication: Abdominal pain upper
     Dosage: UNK
     Route: 065
     Dates: start: 20181109, end: 20191101
  49. MEFENAMIC ACID [Concomitant]
     Active Substance: MEFENAMIC ACID
     Indication: Arthralgia
     Dosage: UNK
     Route: 065
     Dates: start: 20180914, end: 20190615
  50. MEFENAMIC ACID [Concomitant]
     Active Substance: MEFENAMIC ACID
     Indication: Arthralgia
     Dosage: UNK
     Route: 065
     Dates: start: 20180914, end: 20190615
  51. Paspertin [Concomitant]
     Indication: Product used for unknown indication
     Dosage: UNK
     Route: 065
     Dates: start: 20180831, end: 20180907
  52. RANITIDINE HYDROCHLORIDE [Concomitant]
     Active Substance: RANITIDINE HYDROCHLORIDE
     Indication: Product used for unknown indication
     Dosage: UNK
     Route: 065
     Dates: start: 20180810, end: 20180914
  53. DEXIBUPROFEN [Concomitant]
     Active Substance: DEXIBUPROFEN
     Indication: Osteonecrosis of jaw
     Dosage: UNK
     Route: 065
     Dates: start: 20190725, end: 20191015
  54. DEXIBUPROFEN [Concomitant]
     Active Substance: DEXIBUPROFEN
     Dosage: UNK
     Route: 065
     Dates: start: 20190725, end: 20191015
  55. Temesta [Concomitant]
     Indication: Product used for unknown indication
     Dosage: UNK
     Route: 065
  56. TRAZODONE HYDROCHLORIDE [Concomitant]
     Active Substance: TRAZODONE HYDROCHLORIDE
     Indication: Product used for unknown indication
     Dosage: DRUG REPORTED AS TRITTICO RET.
     Route: 065
  57. TRAZODONE HYDROCHLORIDE [Concomitant]
     Active Substance: TRAZODONE HYDROCHLORIDE
     Dosage: DRUG REPORTED AS TRITTICO RET.
     Route: 065
  58. RANITIDINE HYDROCHLORIDE [Concomitant]
     Active Substance: RANITIDINE HYDROCHLORIDE
     Indication: Product used for unknown indication
     Dosage: UNK
     Route: 065
     Dates: start: 20180810, end: 20180914
  59. XGEVA [Concomitant]
     Active Substance: DENOSUMAB
     Indication: Product used for unknown indication
     Dosage: UNK
     Route: 065
     Dates: start: 20180817, end: 20190225

REACTIONS (5)
  - Infection [Recovered/Resolved]
  - Hypertension [Unknown]
  - Dyspnoea [Not Recovered/Not Resolved]
  - Nausea [Recovered/Resolved]
  - Nausea [Not Recovered/Not Resolved]

NARRATIVE: CASE EVENT DATE: 20180810
